FAERS Safety Report 18229867 (Version 2)
Quarter: 2020Q4

REPORT INFORMATION
  Report Type: Spontaneous
  Country: SE (occurrence: SE)
  Receive Date: 20200903
  Receipt Date: 20201208
  Transmission Date: 20210113
  Serious: Yes (Other)
  Sender: FDA-Public Use
  Company Number: SE-REGENERON PHARMACEUTICALS, INC.-2020-74014

PATIENT

DRUGS (1)
  1. EYLEA [Suspect]
     Active Substance: AFLIBERCEPT
     Indication: AGE-RELATED MACULAR DEGENERATION
     Dosage: 1 DF, ONCE
     Dates: start: 20200720, end: 20200720

REACTIONS (5)
  - Headache [Unknown]
  - Intraocular pressure increased [Recovered/Resolved]
  - Visual impairment [Recovered/Resolved]
  - Device difficult to use [Unknown]
  - Device use issue [Unknown]

NARRATIVE: CASE EVENT DATE: 20200720
